FAERS Safety Report 17829987 (Version 2)
Quarter: 2020Q3

REPORT INFORMATION
  Report Type: Report from Study
  Country: US (occurrence: US)
  Receive Date: 20200527
  Receipt Date: 20200706
  Transmission Date: 20201102
  Serious: Yes (Other)
  Sender: FDA-Public Use
  Company Number: US-BAYER-2020-089897

PATIENT
  Age: 61 Year
  Sex: Male

DRUGS (2)
  1. NEXAVAR [Suspect]
     Active Substance: SORAFENIB
     Indication: LIVER DISORDER
     Dosage: 400 MG, BID
     Route: 048
     Dates: start: 202005
  2. NEXAVAR [Suspect]
     Active Substance: SORAFENIB
     Indication: BILIARY TRACT DISORDER
     Dosage: 400 MG, BID
     Route: 048

REACTIONS (6)
  - Peripheral swelling [Not Recovered/Not Resolved]
  - Grip strength decreased [None]
  - Pain in extremity [None]
  - Pain in extremity [Unknown]
  - Mobility decreased [None]
  - Chest pain [Unknown]

NARRATIVE: CASE EVENT DATE: 202005
